FAERS Safety Report 21613309 (Version 3)
Quarter: 2023Q1

REPORT INFORMATION
  Report Type: Spontaneous
  Country: JP (occurrence: JP)
  Receive Date: 20221118
  Receipt Date: 20230206
  Transmission Date: 20230417
  Serious: Yes (Hospitalization)
  Sender: FDA-Public Use
  Company Number: JP-MTPC-MTPC2022-0030969

PATIENT
  Age: 49 Year

DRUGS (10)
  1. REMICADE [Suspect]
     Active Substance: INFLIXIMAB
     Indication: Rheumatoid arthritis
     Dosage: 200 MILLIGRAM, QD
     Route: 041
     Dates: start: 201001
  2. REMICADE [Suspect]
     Active Substance: INFLIXIMAB
     Dosage: 300 MILLIGRAM, QD
     Route: 041
     Dates: start: 201001, end: 201001
  3. REMICADE [Suspect]
     Active Substance: INFLIXIMAB
     Dosage: 300 MILLIGRAM, QD
     Route: 041
  4. REMICADE [Suspect]
     Active Substance: INFLIXIMAB
     Dosage: 200 MILLIGRAM, QD
     Route: 041
     Dates: start: 201312
  5. REMICADE [Suspect]
     Active Substance: INFLIXIMAB
     Dosage: 300 MILLIGRAM, QD
     Route: 041
     Dates: start: 201401
  6. REMICADE [Suspect]
     Active Substance: INFLIXIMAB
     Dosage: 300 MILLIGRAM, QD
     Route: 041
  7. REMICADE [Suspect]
     Active Substance: INFLIXIMAB
     Dosage: 300 MILLIGRAM, QD
     Route: 041
  8. REMICADE [Suspect]
     Active Substance: INFLIXIMAB
     Dosage: 300 MILLIGRAM, QD
     Route: 041
     Dates: start: 201703, end: 201703
  9. METHOTREXATE [Concomitant]
     Active Substance: METHOTREXATE
     Dosage: UNK
     Route: 065
     Dates: end: 201703
  10. GOLD SODIUM THIOMALATE [Concomitant]
     Active Substance: GOLD SODIUM THIOMALATE
     Route: 065

REACTIONS (13)
  - Nephrolithiasis [Unknown]
  - Nephrogenic anaemia [Unknown]
  - Ascites [Unknown]
  - Medical device site joint infection [Unknown]
  - Ascites [Unknown]
  - Thoracic cavity drainage [Unknown]
  - Platelet count decreased [Unknown]
  - Gastric ulcer [Unknown]
  - Bacteraemia [Unknown]
  - Pyelonephritis [Unknown]
  - Pleural effusion [Unknown]
  - Mean cell volume increased [Unknown]
  - Off label use [Unknown]

NARRATIVE: CASE EVENT DATE: 20170301
